FAERS Safety Report 5709371-7 (Version None)
Quarter: 2008Q2

REPORT INFORMATION
  Report Type: 
  Country: None (occurrence: None)
  Receive Date: 20080418
  Receipt Date: 20080415
  Transmission Date: 20081010
  Serious: Yes (Hospitalization)
  Sender: FDA-Public Use
  Company Number: FR-BRISTOL-MYERS SQUIBB COMPANY-14142392

PATIENT
  Age: 59 Year
  Sex: Male

DRUGS (4)
  1. SUSTIVA [Suspect]
     Dates: end: 20080211
  2. METFORMIN HCL [Suspect]
     Dates: end: 20080208
  3. PRAVASTATIN SODIUM [Suspect]
  4. COMBIVIR [Suspect]
     Dates: end: 20080211

REACTIONS (1)
  - ARTHRALGIA [None]
